FAERS Safety Report 5790066-9 (Version None)
Quarter: 2008Q2

REPORT INFORMATION
  Report Type: 
  Country: None (occurrence: None)
  Receive Date: 20080618
  Receipt Date: 20080130
  Transmission Date: 20081010
  Serious: Yes (Other)
  Sender: FDA-Public Use
  Company Number: 200810687US

PATIENT
  Age: 75 Year
  Sex: Female
  Weight: 54 kg

DRUGS (5)
  1. LANTUS [Suspect]
     Indication: TYPE 1 DIABETES MELLITUS
     Dosage: 10 U QD SC
     Route: 058
     Dates: start: 20071218
  2. NOVOLOG [Suspect]
  3. HYPERTENSION DRUG [Concomitant]
  4. FOSAMAX [Concomitant]
  5. OTHER MEDICATIONS NOS [Concomitant]

REACTIONS (1)
  - HYPOGLYCAEMIA [None]
